FAERS Safety Report 6907824-7 (Version None)
Quarter: 2010Q3

REPORT INFORMATION
  Report Type: 
  Country: None (occurrence: None)
  Receive Date: 20100712
  Receipt Date: 20100318
  Transmission Date: 20110219
  Serious: No
  Sender: FDA-Public Use
  Company Number: US-000039

PATIENT
  Sex: Female
  Weight: 61.2356 kg

DRUGS (5)
  1. KUVAN [Suspect]
     Indication: PHENYLKETONURIA
     Dosage: (1300 MG QD ORAL), (600 MG QD ORAL), (SLOWLY DECREASED AND THEN STOPPED ORAL), (ORAL)
     Route: 048
     Dates: start: 20090101, end: 20090101
  2. KUVAN [Suspect]
     Indication: PHENYLKETONURIA
     Dosage: (1300 MG QD ORAL), (600 MG QD ORAL), (SLOWLY DECREASED AND THEN STOPPED ORAL), (ORAL)
     Route: 048
     Dates: start: 20091201, end: 20100101
  3. KUVAN [Suspect]
     Indication: PHENYLKETONURIA
     Dosage: (1300 MG QD ORAL), (600 MG QD ORAL), (SLOWLY DECREASED AND THEN STOPPED ORAL), (ORAL)
     Route: 048
     Dates: start: 20100101, end: 20100201
  4. KUVAN [Suspect]
     Indication: PHENYLKETONURIA
     Dosage: (1300 MG QD ORAL), (600 MG QD ORAL), (SLOWLY DECREASED AND THEN STOPPED ORAL), (ORAL)
     Route: 048
     Dates: start: 20100201, end: 20100303
  5. MONONESSA [Concomitant]

REACTIONS (1)
  - ALOPECIA [None]
